FAERS Safety Report 8496916-X (Version None)
Quarter: 2012Q3

REPORT INFORMATION
  Report Type: 
  Country: None (occurrence: None)
  Receive Date: 20120709
  Receipt Date: 20120628
  Transmission Date: 20120928
  Serious: Yes (Hospitalization, Other)
  Sender: FDA-Public Use
  Company Number: US-ELI_LILLY_AND_COMPANY-US201107001842

PATIENT
  Sex: Female

DRUGS (9)
  1. VITAMIN D [Concomitant]
  2. EVISTA [Suspect]
     Indication: OSTEOPOROSIS
     Dosage: 60 MG, QD
     Dates: start: 20070101, end: 20110701
  3. PRILOSEC [Concomitant]
     Indication: GASTROOESOPHAGEAL REFLUX DISEASE
     Dosage: UNK, QD
  4. ASPIRIN [Concomitant]
  5. FORTEO [Suspect]
     Dosage: 20 UG, QD
  6. LEVOTHYROXINE SODIUM [Concomitant]
  7. FORTEO [Suspect]
     Indication: OSTEOPOROSIS
     Dosage: 20 UG, QD
     Route: 058
  8. FORTEO [Suspect]
     Dosage: 20 UG, QD
  9. TUMS                               /00193601/ [Concomitant]

REACTIONS (8)
  - FEELING ABNORMAL [None]
  - BALANCE DISORDER [None]
  - INJECTION SITE HAEMATOMA [None]
  - FALL [None]
  - PAIN IN EXTREMITY [None]
  - SLEEP DISORDER [None]
  - PELVIC FRACTURE [None]
  - INTENTIONAL DRUG MISUSE [None]
